FAERS Safety Report 8238708-2 (Version None)
Quarter: 2012Q1

REPORT INFORMATION
  Report Type: 
  Country: None (occurrence: None)
  Receive Date: 20120327
  Receipt Date: 20120319
  Transmission Date: 20120608
  Serious: Yes (Other)
  Sender: FDA-Public Use
  Company Number: US-PFIZER INC-2012031697

PATIENT
  Sex: Male

DRUGS (1)
  1. LYRICA [Suspect]
     Dosage: UNK

REACTIONS (5)
  - GAIT DISTURBANCE [None]
  - MUSCLE STRAIN [None]
  - BEDRIDDEN [None]
  - PAIN [None]
  - DRY MOUTH [None]
